FAERS Safety Report 22090297 (Version 1)
Quarter: 2023Q1

REPORT INFORMATION
  Report Type: Spontaneous
  Country: US (occurrence: None)
  Receive Date: 20230313
  Receipt Date: 20230313
  Transmission Date: 20230417
  Serious: Yes (Other)
  Sender: FDA-Public Use
  Company Number: None

PATIENT
  Age: 58 Year
  Sex: Female
  Weight: 58.51 kg

DRUGS (1)
  1. PROGESTERONE [Suspect]
     Active Substance: PROGESTERONE
     Indication: Menopausal symptoms
     Dosage: 1 CAPSULE DAILY BY MOUTH ?
     Route: 048
     Dates: start: 20221022, end: 20221103

REACTIONS (5)
  - Nausea [None]
  - Headache [None]
  - Breast tenderness [None]
  - Sleep disorder [None]
  - Vaginal haemorrhage [None]

NARRATIVE: CASE EVENT DATE: 20221022
